FAERS Safety Report 4297319-4 (Version None)
Quarter: 2004Q1

REPORT INFORMATION
  Report Type: 
  Country: None (occurrence: None)
  Receive Date: 20040212
  Receipt Date: 20031105
  Transmission Date: 20041129
  Serious: Yes (Other)
  Sender: FDA-Public Use
  Company Number: A03200301182

PATIENT
  Age: 76 Year
  Sex: Female
  Weight: 56.6996 kg

DRUGS (2)
  1. AMBIEN [Suspect]
     Indication: INSOMNIA
     Dosage: 10 MG HS - ORAL
     Route: 048
     Dates: start: 20030101, end: 20030101
  2. ATENOLOL [Concomitant]

REACTIONS (3)
  - CHEST PAIN [None]
  - HYPERTENSION [None]
  - THROAT TIGHTNESS [None]
